FAERS Safety Report 9696041 (Version 1)
Quarter: 2013Q4

REPORT INFORMATION
  Report Type: Spontaneous
  Country: US (occurrence: US)
  Receive Date: 20131119
  Receipt Date: 20131119
  Transmission Date: 20140711
  Serious: Yes (Other)
  Sender: FDA-Public Use
  Company Number: CHPA2013US017208

PATIENT
  Sex: Female

DRUGS (2)
  1. GAS-X EXTRA STR CHEWABLE TABLETS UNKNOWN [Suspect]
     Indication: FLATULENCE
     Dosage: UNK, UNK
     Route: 048
  2. GAS-X W/MAALOX ES A+A FASTTABS UNKNOWN [Suspect]
     Indication: FLATULENCE
     Dosage: UNK, UNK

REACTIONS (1)
  - Cholelithiasis [Unknown]
